FAERS Safety Report 15750192 (Version 1)
Quarter: 2018Q4

REPORT INFORMATION
  Report Type: Spontaneous
  Country: US (occurrence: US)
  Receive Date: 20181205
  Receipt Date: 20181205
  Transmission Date: 20190205
  Serious: No
  Sender: FDA-Public Use
  Company Number: None

PATIENT
  Sex: Female

DRUGS (1)
  1. STIVARGA [Suspect]
     Active Substance: REGORAFENIB
     Dosage: ?          OTHER FREQUENCY:QAM;?
     Route: 048
     Dates: start: 20181113

REACTIONS (2)
  - Pruritus generalised [None]
  - Cough [None]
